FAERS Safety Report 17268408 (Version 1)
Quarter: 2020Q1

REPORT INFORMATION
  Report Type: Spontaneous
  Country: US (occurrence: US)
  Receive Date: 20200114
  Receipt Date: 20200114
  Transmission Date: 20200409
  Serious: Yes (Death)
  Sender: FDA-Public Use
  Company Number: US-BAYER-2020-004178

PATIENT
  Age: 46 Year
  Sex: Female

DRUGS (3)
  1. GABAPENTIN. [Suspect]
     Active Substance: GABAPENTIN
  2. LIDOCAINE. [Suspect]
     Active Substance: LIDOCAINE
     Route: 065
  3. MORPHINE [Suspect]
     Active Substance: MORPHINE

REACTIONS (2)
  - Toxicity to various agents [Fatal]
  - Product use issue [Fatal]
